FAERS Safety Report 12617236 (Version 8)
Quarter: 2018Q1

REPORT INFORMATION
  Report Type: Report from Study
  Country: UY (occurrence: UY)
  Receive Date: 20160803
  Receipt Date: 20180222
  Transmission Date: 20180508
  Serious: Yes (Other)
  Sender: FDA-Public Use
  Company Number: UY-ROCHE-1806445

PATIENT
  Sex: Female

DRUGS (5)
  1. ATENOLOL. [Concomitant]
     Active Substance: ATENOLOL
     Indication: HYPERTENSION
  2. XELODA [Suspect]
     Active Substance: CAPECITABINE
     Indication: BREAST CANCER
     Route: 048
     Dates: start: 2012
  3. T4 [Concomitant]
     Active Substance: LEVOTHYROXINE
     Indication: THYROID OPERATION
  4. CAPECITABINA [Suspect]
     Active Substance: CAPECITABINE
     Indication: BREAST CANCER
     Route: 065
  5. XELODA [Suspect]
     Active Substance: CAPECITABINE
     Indication: METASTASES TO BONE
     Route: 048

REACTIONS (26)
  - Skin wrinkling [Recovering/Resolving]
  - Aversion [Not Recovered/Not Resolved]
  - Gastrointestinal pain [Not Recovered/Not Resolved]
  - Dry skin [Recovering/Resolving]
  - Anxiety [Not Recovered/Not Resolved]
  - Depression [Recovered/Resolved]
  - Abdominal discomfort [Not Recovered/Not Resolved]
  - Bone pain [Not Recovered/Not Resolved]
  - Ill-defined disorder [Recovering/Resolving]
  - Pigmentation disorder [Recovering/Resolving]
  - Pain [Not Recovered/Not Resolved]
  - Skin wrinkling [Not Recovered/Not Resolved]
  - Abdominal pain upper [Recovered/Resolved]
  - Confusional state [Not Recovered/Not Resolved]
  - Depressed mood [Recovering/Resolving]
  - Ill-defined disorder [Not Recovered/Not Resolved]
  - Decreased appetite [Recovering/Resolving]
  - Haemorrhoids [Not Recovered/Not Resolved]
  - Wound [Not Recovered/Not Resolved]
  - Palmar-plantar erythrodysaesthesia syndrome [Recovering/Resolving]
  - Abdominal pain upper [Not Recovered/Not Resolved]
  - Irritable bowel syndrome [Not Recovered/Not Resolved]
  - Diarrhoea [Recovered/Resolved]
  - Vomiting [Recovered/Resolved]
  - Skin discolouration [Unknown]
  - Cystitis [Recovered/Resolved]
